FAERS Safety Report 18275245 (Version 2)
Quarter: 2020Q4

REPORT INFORMATION
  Report Type: Report from Study
  Country: US (occurrence: US)
  Receive Date: 20200916
  Receipt Date: 20201022
  Transmission Date: 20210113
  Serious: No
  Sender: FDA-Public Use
  Company Number: US-B.I. PHARMACEUTICALS,INC./RIDGEFIELD-2020-BI-046071

PATIENT
  Age: 52 Year
  Sex: Female

DRUGS (1)
  1. OFEV [Suspect]
     Active Substance: NINTEDANIB
     Indication: INTERSTITIAL LUNG DISEASE
     Dosage: 150MG TWICE DAILY
     Route: 048
     Dates: start: 20200817

REACTIONS (6)
  - Diarrhoea [Unknown]
  - Renal pain [Unknown]
  - Nausea [Unknown]
  - Dysuria [Unknown]
  - Vomiting projectile [Unknown]
  - Blood urine present [Unknown]

NARRATIVE: CASE EVENT DATE: 20200829
